FAERS Safety Report 9828238 (Version 2)
Quarter: 2014Q1

REPORT INFORMATION
  Report Type: Spontaneous
  Country: US (occurrence: US)
  Receive Date: 20140117
  Receipt Date: 20140117
  Transmission Date: 20141002
  Serious: No
  Sender: FDA-Public Use
  Company Number: US-GILEAD-2011-0041545

PATIENT
  Sex: Male
  Weight: 86.62 kg

DRUGS (5)
  1. ATRIPLA [Suspect]
     Indication: HIV INFECTION
     Dosage: UNK
     Dates: start: 20100420
  2. SULFAMETHOXAZOLE/TRIMETHOPRIM [Concomitant]
     Dosage: UNK
  3. LIPITOR [Concomitant]
  4. NAPROSYN [Concomitant]
  5. AZITHROMYCIN [Concomitant]
     Dosage: UNK
     Dates: start: 20100412

REACTIONS (1)
  - Arthralgia [Unknown]
